FAERS Safety Report 7560235-6 (Version None)
Quarter: 2011Q2

REPORT INFORMATION
  Report Type: 
  Country: None (occurrence: None)
  Receive Date: 20110617
  Receipt Date: 20110617
  Transmission Date: 20111010
  Serious: Yes (Hospitalization)
  Sender: FDA-Public Use
  Company Number: None

PATIENT
  Age: 42 Year
  Sex: Male
  Weight: 68 kg

DRUGS (1)
  1. SYMLIN [Suspect]
     Indication: DIABETES MELLITUS
     Dosage: 15 MCG BEFORE MEALS SQ
     Route: 058

REACTIONS (3)
  - LETHARGY [None]
  - OROPHARYNGEAL PAIN [None]
  - PNEUMONIA [None]
